FAERS Safety Report 8195861-7 (Version None)
Quarter: 2012Q1

REPORT INFORMATION
  Report Type: 
  Country: None (occurrence: None)
  Receive Date: 20120308
  Receipt Date: 20120224
  Transmission Date: 20120608
  Serious: Yes (Hospitalization)
  Sender: FDA-Public Use
  Company Number: DE-ELI_LILLY_AND_COMPANY-DE201202007055

PATIENT
  Age: 80 Year
  Sex: Male

DRUGS (9)
  1. PRAMIPEXOLE DIHYDROCHLORIDE [Concomitant]
     Dosage: UNK
  2. MOVIPREP [Concomitant]
     Dosage: UNK
  3. TRAMADOL HCL [Concomitant]
     Dosage: UNK, PRN
  4. RAMIPRIL [Concomitant]
     Dosage: 1 DF, UNKNOWN
  5. NAPROXEN [Concomitant]
     Dosage: UNK
  6. BYDUREON [Suspect]
     Indication: TYPE 2 DIABETES MELLITUS
     Dosage: 2 MG, WEEKLY (1/W)
     Route: 058
     Dates: start: 20120101, end: 20120213
  7. ADVANTAN [Concomitant]
     Dosage: UNK
  8. MIRTAZAPINE [Concomitant]
  9. VOLTAREN                                /SCH/ [Concomitant]
     Dosage: UNK

REACTIONS (3)
  - BLOOD TEST ABNORMAL [None]
  - BLOOD CREATININE INCREASED [None]
  - HEPATIC NEOPLASM [None]
